FAERS Safety Report 25606443 (Version 3)
Quarter: 2025Q3

REPORT INFORMATION
  Report Type: Spontaneous
  Country: US (occurrence: US)
  Receive Date: 20250725
  Receipt Date: 20250828
  Transmission Date: 20251020
  Serious: No
  Sender: ABBVIE
  Company Number: US-ABBVIE-6380014

PATIENT
  Age: 65 Year
  Sex: Female
  Weight: 61.23 kg

DRUGS (5)
  1. ESTRACE [Suspect]
     Active Substance: ESTRADIOL
     Indication: Hysterectomy
     Dosage: FORM STRENGTH: 0.01?FORM STRENGTH UNITS: PERCENT?LAST ADMINISTRATION (TEXT): DISCONTINUED
     Route: 067
     Dates: start: 2013, end: 20250712
  2. ESTRACE [Suspect]
     Active Substance: ESTRADIOL
     Indication: Urinary bladder suspension
  3. ESTRACE [Suspect]
     Active Substance: ESTRADIOL
     Indication: Soft tissue disorder
  4. REPLENS [Concomitant]
     Active Substance: CARBOMER 934\GLYCERIN\METHYLPARABEN\PROPYLPARABEN\SODIUM HYDROXIDE
     Indication: Dry skin prophylaxis
  5. ESTRADIOL [Suspect]
     Active Substance: ESTRADIOL
     Indication: Product used for unknown indication
     Route: 065

REACTIONS (22)
  - Tremor [Not Recovered/Not Resolved]
  - Rash papular [Not Recovered/Not Resolved]
  - Inflammation [Not Recovered/Not Resolved]
  - Dermatitis contact [Recovered/Resolved]
  - Skin laceration [Recovered/Resolved]
  - Gait disturbance [Not Recovered/Not Resolved]
  - Pain [Not Recovered/Not Resolved]
  - Burning sensation [Not Recovered/Not Resolved]
  - Emotional distress [Not Recovered/Not Resolved]
  - Peripheral swelling [Recovered/Resolved]
  - Blister [Not Recovered/Not Resolved]
  - Insomnia [Not Recovered/Not Resolved]
  - Dysstasia [Not Recovered/Not Resolved]
  - Skin fissures [Recovered/Resolved]
  - Paraesthesia [Not Recovered/Not Resolved]
  - Pelvic discomfort [Not Recovered/Not Resolved]
  - Pelvic pain [Not Recovered/Not Resolved]
  - Swelling face [Unknown]
  - Pruritus [Unknown]
  - Viral infection [Recovered/Resolved]
  - Off label use [Unknown]
  - Catheter site swelling [Unknown]

NARRATIVE: CASE EVENT DATE: 20250101
